FAERS Safety Report 9260139 (Version 1)
Quarter: 2013Q2

REPORT INFORMATION
  Report Type: Report from Study
  Country: US (occurrence: US)
  Receive Date: 20130429
  Receipt Date: 20130429
  Transmission Date: 20140414
  Serious: Yes (Other)
  Sender: FDA-Public Use
  Company Number: PHEH2012US025837

PATIENT
  Age: 53 Year
  Sex: Female
  Weight: 90.25 kg

DRUGS (1)
  1. ILARIS [Suspect]
     Dosage: 300 MG, EVERY 28 DAYS
     Route: 058

REACTIONS (5)
  - Chest pain [Unknown]
  - Breast swelling [Unknown]
  - Asthenia [Unknown]
  - Dyspnoea [Unknown]
  - Oedema peripheral [Unknown]
